FAERS Safety Report 16108304 (Version 4)
Quarter: 2019Q2

REPORT INFORMATION
  Report Type: Spontaneous
  Country: JP (occurrence: JP)
  Receive Date: 20190322
  Receipt Date: 20190626
  Transmission Date: 20190711
  Serious: Yes (Hospitalization, Other)
  Sender: FDA-Public Use
  Company Number: PHJP2019JP003388

PATIENT
  Age: 36 Year
  Sex: Female

DRUGS (9)
  1. DANAZOL. [Concomitant]
     Active Substance: DANAZOL
     Dosage: 100 MG, UNK
     Route: 065
     Dates: start: 200305
  2. RED BLOOD CELLS, CONCENTRATED [Concomitant]
     Active Substance: HUMAN RED BLOOD CELL
     Indication: APLASTIC ANAEMIA
     Dosage: UNK
     Route: 065
  3. CICLOSPORIN [Suspect]
     Active Substance: CYCLOSPORINE
     Indication: APLASTIC ANAEMIA
     Dosage: UNK
     Route: 065
     Dates: start: 200012
  4. PREDNISOLONE. [Concomitant]
     Active Substance: PREDNISOLONE
     Indication: APLASTIC ANAEMIA
     Dosage: UNK
     Route: 065
  5. DANAZOL. [Concomitant]
     Active Substance: DANAZOL
     Indication: APLASTIC ANAEMIA
     Dosage: UNK
     Route: 065
     Dates: start: 200012
  6. DANAZOL. [Concomitant]
     Active Substance: DANAZOL
     Dosage: 300 MG, UNK
     Route: 065
     Dates: start: 200810
  7. ELTROMBOPAG [Suspect]
     Active Substance: ELTROMBOPAG
     Indication: APLASTIC ANAEMIA
     Dosage: UNK
     Route: 065
     Dates: start: 201709
  8. CICLOSPORIN [Suspect]
     Active Substance: CYCLOSPORINE
     Dosage: 50 MG, UNK
     Route: 065
     Dates: start: 200305
  9. PLATELETS [Concomitant]
     Active Substance: HUMAN PLATELET, ALLOGENIC
     Indication: APLASTIC ANAEMIA
     Dosage: UNK
     Route: 065

REACTIONS (10)
  - Therapy non-responder [Unknown]
  - Escherichia bacteraemia [Unknown]
  - Ulcer haemorrhage [Unknown]
  - Aplastic anaemia [Unknown]
  - Concomitant disease aggravated [Unknown]
  - Colon cancer [Unknown]
  - Infection [Unknown]
  - Pneumonia [Unknown]
  - Febrile neutropenia [Unknown]
  - Disease progression [Unknown]

NARRATIVE: CASE EVENT DATE: 200810
